FAERS Safety Report 5010103-9 (Version None)
Quarter: 2006Q2

REPORT INFORMATION
  Report Type: 
  Country: None (occurrence: None)
  Receive Date: 20060523
  Receipt Date: 20060512
  Transmission Date: 20061013
  Serious: Yes (Other)
  Sender: FDA-Public Use
  Company Number: MEDI-0004579

PATIENT
  Age: 24 Month
  Sex: Male

DRUGS (12)
  1. SYNAGIS [Suspect]
     Indication: ANTIVIRAL PROPHYLAXIS
     Dosage: 68 MG, 1 IN 30 D, INTRAMUSCULAR; SEE IMAGE
     Route: 030
     Dates: start: 20031218, end: 20040302
  2. SYNAGIS [Suspect]
     Indication: ANTIVIRAL PROPHYLAXIS
     Dosage: 68 MG, 1 IN 30 D, INTRAMUSCULAR; SEE IMAGE
     Route: 030
     Dates: start: 20031218
  3. SYNAGIS [Suspect]
     Indication: ANTIVIRAL PROPHYLAXIS
     Dosage: 68 MG, 1 IN 30 D, INTRAMUSCULAR; SEE IMAGE
     Route: 030
     Dates: start: 20040114
  4. SYNAGIS [Suspect]
     Indication: ANTIVIRAL PROPHYLAXIS
     Dosage: 68 MG, 1 IN 30 D, INTRAMUSCULAR; SEE IMAGE
     Route: 030
     Dates: start: 20040209
  5. ALFACALCIDOL          (ALFACALCIDOL) [Concomitant]
  6. EPOETIN ALFA 750              (EPOETIN ALFA) [Concomitant]
  7. MULTIPLE VITAMIN [Concomitant]
  8. FERRIC PYROPHOSPHATE                 (FERRIC PYROPHOSPHATE) [Concomitant]
  9. LEVOTHYROXINE SODIUM [Concomitant]
  10. AMIKACIN SULFATE [Concomitant]
  11. OXYGEN (OXYGEN) [Concomitant]
  12. CEFMETAZOLE SODIUM            (CEFMETAZOLE SODIUM) [Concomitant]

REACTIONS (1)
  - ASTHMA [None]
